FAERS Safety Report 10060632 (Version 3)
Quarter: 2014Q2

REPORT INFORMATION
  Report Type: Report from Study
  Country: DK (occurrence: DK)
  Receive Date: 20140404
  Receipt Date: 20140508
  Transmission Date: 20141212
  Serious: Yes (Other)
  Sender: FDA-Public Use
  Company Number: DK-ABBVIE-14P-044-1219810-00

PATIENT
  Age: 57 Year
  Sex: Male
  Weight: 84 kg

DRUGS (7)
  1. HUMIRA [Suspect]
     Indication: PSORIASIS
     Route: 058
     Dates: start: 20100125, end: 20100125
  2. HUMIRA [Suspect]
     Route: 058
     Dates: end: 20130123
  3. METHOTREXATE [Concomitant]
     Indication: PSORIASIS
     Dates: start: 2008
  4. METHOTREXATE [Concomitant]
     Dates: start: 2008
  5. FOLIC ACID [Concomitant]
     Indication: PSORIASIS
     Dates: start: 200812
  6. NEOTIGASON [Concomitant]
     Indication: PSORIASIS
     Dates: start: 20130204, end: 20130513
  7. METEX [Concomitant]
     Indication: PSORIASIS
     Dates: start: 20131211, end: 201401

REACTIONS (1)
  - Prostate cancer [Recovered/Resolved]
